FAERS Safety Report 7807196-X (Version None)
Quarter: 2011Q4

REPORT INFORMATION
  Report Type: 
  Country: None (occurrence: None)
  Receive Date: 20111011
  Receipt Date: 20111006
  Transmission Date: 20120403
  Serious: Yes (Death, Other)
  Sender: FDA-Public Use
  Company Number: PHHY2011NL88984

PATIENT
  Age: 40 Year
  Sex: Male

DRUGS (2)
  1. TASIGNA [Suspect]
     Indication: ACUTE LYMPHOCYTIC LEUKAEMIA
     Dosage: 400 MG, BID
     Route: 048
  2. TASIGNA [Suspect]
     Indication: CHROMOSOME ANALYSIS ABNORMAL

REACTIONS (2)
  - COLITIS [None]
  - ACUTE LYMPHOCYTIC LEUKAEMIA [None]
